FAERS Safety Report 18393990 (Version 2)
Quarter: 2020Q4

REPORT INFORMATION
  Report Type: Spontaneous
  Country: US (occurrence: US)
  Receive Date: 20201016
  Receipt Date: 20201229
  Transmission Date: 20210114
  Serious: Yes (Hospitalization, Other)
  Sender: FDA-Public Use
  Company Number: US-ASTRAZENECA-2020SF30643

PATIENT
  Age: 28675 Day
  Sex: Female
  Weight: 75.3 kg

DRUGS (25)
  1. ONGLYZA [Suspect]
     Active Substance: SAXAGLIPTIN HYDROCHLORIDE
     Indication: TYPE 2 DIABETES MELLITUS
     Route: 048
     Dates: start: 20130615, end: 20161213
  2. BUMETANIDE. [Concomitant]
     Active Substance: BUMETANIDE
     Dosage: TAKE 1 TABLET (1MG) BY ORAL ROUTE 2 TIMES EVERY DAY
     Dates: start: 20120215
  3. NEURONTIN [Concomitant]
     Active Substance: GABAPENTIN
     Dosage: TAKE 1 TABLET (600MG) BY ORAL ROUTE 3 TIMES EVERY DAY
  4. ALENDRONATE [Concomitant]
     Active Substance: ALENDRONATE SODIUM
     Dosage: TAKE 1 TABLET BY ORAL ROUTE EVERY WEEK
  5. KOMBIGLYZE XR [Suspect]
     Active Substance: METFORMIN HYDROCHLORIDE\SAXAGLIPTIN HYDROCHLORIDE
     Indication: TYPE 2 DIABETES MELLITUS
     Dosage: 5-500MG
     Route: 048
     Dates: start: 20120411, end: 20130615
  6. COREG [Concomitant]
     Active Substance: CARVEDILOL
     Dosage: TAKE 1 TABLET (12.5MG) BY ORAL ROUTE 2 TIMES EVERY DAY WITH FOOD
  7. NORVASC [Concomitant]
     Active Substance: AMLODIPINE BESYLATE
     Dosage: TAKE 1 TABLET (5MG) BY ORAL ROUTE EVERY DAY
  8. PLAVIX [Concomitant]
     Active Substance: CLOPIDOGREL BISULFATE
     Dosage: TAKE 1 TABLET (75MG) BY ORAL ROUTE EVERY DAY
  9. PROTONIX [Concomitant]
     Active Substance: PANTOPRAZOLE SODIUM
     Dosage: TAKE 1 TABLET (40MG) BY ORAL ROUTE EVERY DAY
     Dates: start: 20120215
  10. LOMOTIL [Concomitant]
     Active Substance: ATROPINE SULFATE\DIPHENOXYLATE HYDROCHLORIDE
     Dosage: TAKE 2 TABLET (5MG) BY ORAL ROUTE 4 TIMES EVERY DAY AS NEE
  11. ONGLYZA [Suspect]
     Active Substance: SAXAGLIPTIN HYDROCHLORIDE
     Indication: TYPE 2 DIABETES MELLITUS
     Route: 048
     Dates: start: 20111215, end: 20120411
  12. BUDESONIDE. [Concomitant]
     Active Substance: BUDESONIDE
     Dosage: TAKE 3 CAPSULE (9MG) BY ORAL ROUTE 3 TIMES EVERY DAY
     Dates: start: 20120215
  13. PLETAL [Concomitant]
     Active Substance: CILOSTAZOL
     Dosage: TAKE 1 TABLET (100MG) BY ORAL ROUTE 2 TIMES EVERY DAY 1/2 HR BEFORE OR 2 HRS AFTER BREAKFAST AND ...
     Dates: start: 20120215
  14. LIPITOR [Concomitant]
     Active Substance: ATORVASTATIN CALCIUM
     Dosage: TAKE 1 TABLET BY ORAL ROUTE EVERY DAY
  15. KOMBIGLYZE XR [Suspect]
     Active Substance: METFORMIN HYDROCHLORIDE\SAXAGLIPTIN HYDROCHLORIDE
     Indication: TYPE 2 DIABETES MELLITUS
     Dosage: 5-500MG 24 HR TAB EVERY DAY
     Route: 048
     Dates: start: 20120411
  16. AMITRIPTYLINE [Concomitant]
     Active Substance: AMITRIPTYLINE
     Dosage: TAKE 1 TABLET (50MG) BY ORAL ROUTE 3 TIMES EVERY DAY AT BEDTIME
  17. ALBUTEROL SULFATE. [Concomitant]
     Active Substance: ALBUTEROL SULFATE
     Dosage: INHALE 2 PUFF BY INHALATION ROUTE EVERY 4 - 6 HOURS AS NEEDED
  18. ARICEPT [Concomitant]
     Active Substance: DONEPEZIL HYDROCHLORIDE
     Dosage: TAKE 1 TABLET (10MG) BY ORAL ROUTE EVERY DAY IN THE EVENING
  19. POTASSIUM CHLORIDE. [Concomitant]
     Active Substance: POTASSIUM CHLORIDE
     Dosage: TAKE 1 TABLET (20MEQ) BY ORAL ROUTE 2 TIMES EVERY DAY WITH FOOD
     Dates: start: 20120215
  20. FOLIC ACID. [Concomitant]
     Active Substance: FOLIC ACID
     Dosage: TAKE 1 TABLET (1MG) BY ORAL ROUTE EVERY DAY
     Dates: start: 20120215
  21. AMARYL [Concomitant]
     Active Substance: GLIMEPIRIDE
     Dosage: TAKE 1 TABLET (4MG) BY ORAL ROUTE 2 TIMES EVERY DAY
     Dates: start: 20120215
  22. SYNTHROID [Concomitant]
     Active Substance: LEVOTHYROXINE SODIUM
     Dosage: TAKE 1 TABLET (125MCG) BY ORAL ROUTE EVERY DAY
  23. ONGLYZA [Suspect]
     Active Substance: SAXAGLIPTIN HYDROCHLORIDE
     Indication: TYPE 2 DIABETES MELLITUS
     Route: 048
     Dates: start: 2014
  24. CRESTOR [Concomitant]
     Active Substance: ROSUVASTATIN CALCIUM
     Dosage: TAKE 1 TABLET (40MG) BY ORAL ROUTE EVERY DAY
  25. LASIX [Concomitant]
     Active Substance: FUROSEMIDE
     Dosage: TAKE 1 TABLET BY ORAL ROUTE 2 TIMES EVERY DAY

REACTIONS (1)
  - Cardiac failure congestive [Unknown]

NARRATIVE: CASE EVENT DATE: 20160202
